FAERS Safety Report 16006353 (Version 2)
Quarter: 2019Q1

REPORT INFORMATION
  Report Type: Spontaneous
  Country: US (occurrence: US)
  Receive Date: 20190226
  Receipt Date: 20190228
  Transmission Date: 20190418
  Serious: Yes (Death, Other)
  Sender: FDA-Public Use
  Company Number: US-PFIZER INC-2019080126

PATIENT
  Sex: Male

DRUGS (1)
  1. MAGNESIUM SULFATE. [Suspect]
     Active Substance: MAGNESIUM SULFATE
     Indication: TETANUS
     Dosage: 120 ML (4 OUNCES)
     Route: 058
     Dates: start: 1911

REACTIONS (4)
  - Overdose [Fatal]
  - Muscle disorder [Unknown]
  - Respiratory paralysis [Fatal]
  - Depressed level of consciousness [Unknown]

NARRATIVE: CASE EVENT DATE: 1911
